FAERS Safety Report 9720388 (Version 2)
Quarter: 2014Q1

REPORT INFORMATION
  Report Type: Spontaneous
  Country: ES (occurrence: ES)
  Receive Date: 20131129
  Receipt Date: 20140221
  Transmission Date: 20141002
  Serious: Yes (Death, Hospitalization)
  Sender: FDA-Public Use
  Company Number: ES-ACCORD-020434

PATIENT
  Age: 79 Year
  Sex: Male

DRUGS (6)
  1. GEMCITABINE HYDROCHLORIDE [Suspect]
     Indication: PANCREATIC CARCINOMA
     Dosage: DURATION: 34 WEEKS 1 DAY
     Route: 042
     Dates: start: 20120809, end: 20130321
  2. AMLODIPINE [Concomitant]
     Indication: HYPERTENSION
     Dosage: DOSAGE: 5 MG BID
     Route: 048
  3. METFORMIN [Concomitant]
     Indication: DIABETES MELLITUS
     Route: 048
  4. OMEPRAZOLE [Concomitant]
     Indication: PROPHYLAXIS
     Route: 048
  5. ADIRO [Concomitant]
     Indication: THROMBOSIS PROPHYLAXIS
     Route: 048
  6. CONDRO SAN [Concomitant]
     Indication: PROPHYLAXIS
     Dosage: DOSAGE:400 MG 1X/12 HOURS
     Route: 048

REACTIONS (2)
  - Pneumonitis [Not Recovered/Not Resolved]
  - Gastrointestinal haemorrhage [Fatal]
